FAERS Safety Report 12681398 (Version 1)
Quarter: 2016Q3

REPORT INFORMATION
  Report Type: Spontaneous
  Country: US (occurrence: US)
  Receive Date: 20160824
  Receipt Date: 20160824
  Transmission Date: 20161109
  Serious: Yes (Other)
  Sender: FDA-Public Use
  Company Number: US-LPDUSPRD-20160729

PATIENT
  Sex: Male

DRUGS (1)
  1. INJECTAFER [Suspect]
     Active Substance: FERRIC CARBOXYMALTOSE
     Dosage: EVERY 3 MONTHS FOR 1.5 YEARS
     Route: 065
     Dates: start: 2015

REACTIONS (3)
  - Vitamin D deficiency [Unknown]
  - Arthralgia [Unknown]
  - Osteomalacia [Unknown]

NARRATIVE: CASE EVENT DATE: 2016
